FAERS Safety Report 9685311 (Version 1)
Quarter: 2013Q4

REPORT INFORMATION
  Report Type: Spontaneous
  Country: US (occurrence: None)
  Receive Date: 20131112
  Receipt Date: 20131112
  Transmission Date: 20140711
  Serious: Yes (Other)
  Sender: FDA-Public Use
  Company Number: None

PATIENT
  Sex: Male

DRUGS (1)
  1. EGRIFTA 2MG SERONO [Suspect]
     Indication: LIPODYSTROPHY ACQUIRED
     Dosage: 2MG, QD, SQ
     Dates: start: 201206

REACTIONS (1)
  - Bone cancer [None]
